FAERS Safety Report 10464410 (Version 3)
Quarter: 2015Q1

REPORT INFORMATION
  Report Type: Report from Study
  Country: US (occurrence: US)
  Receive Date: 20140919
  Receipt Date: 20150226
  Transmission Date: 20150720
  Serious: Yes (Hospitalization)
  Sender: FDA-Public Use
  Company Number: PHHY2014US059047

PATIENT
  Age: 74 Year
  Sex: Female

DRUGS (15)
  1. OXALIPLATIN. [Suspect]
     Active Substance: OXALIPLATIN
     Indication: COLORECTAL CANCER METASTATIC
     Dosage: 175 MG/M2, IN 2 WEEKS
     Route: 042
     Dates: start: 20140402, end: 20140422
  2. 5-FLUOROURACIL [Suspect]
     Active Substance: FLUOROURACIL
     Indication: COLORECTAL CANCER METASTATIC
     Dosage: 478 MG/KG, ONCE IN 2 WEEKS
     Route: 041
     Dates: start: 20140402, end: 20140422
  3. 5-FLUOROURACIL [Suspect]
     Active Substance: FLUOROURACIL
     Dosage: 210 MG, ONCE IN 2 WEEKS
     Route: 040
     Dates: start: 20140402, end: 20140422
  4. 5-FLUOROURACIL [Suspect]
     Active Substance: FLUOROURACIL
     Dosage: 1 DF, IN 2 WEEKS
     Route: 042
     Dates: start: 20140506
  5. LEVOLEUCOVORIN [Suspect]
     Active Substance: LEVOLEUCOVORIN
     Dosage: UNK
     Route: 042
     Dates: start: 20140506
  6. IRINOTECAN [Suspect]
     Active Substance: IRINOTECAN
     Indication: COLORECTAL CANCER METASTATIC
     Dosage: 340 MG/M2, ONCE IN 2 WEEKS
     Route: 042
     Dates: start: 20140402, end: 20140422
  7. LEUCOVORIN [Suspect]
     Active Substance: LEUCOVORIN
     Indication: COLORECTAL CANCER METASTATIC
     Dosage: 200 MG/M2, ONCE IN 2 WEEKS
     Route: 042
     Dates: start: 20140402
  8. BEVACIZUMAB [Suspect]
     Active Substance: BEVACIZUMAB
     Indication: COLORECTAL CANCER METASTATIC
     Dosage: 478 MG, 1 IN 2 WEEK
     Route: 042
     Dates: start: 20140402
  9. COUMADINE [Concomitant]
     Active Substance: WARFARIN SODIUM
     Indication: PRODUCT USED FOR UNKNOWN INDICATION
     Dosage: UNK
     Route: 065
  10. NEULASTA [Concomitant]
     Active Substance: PEGFILGRASTIM
     Indication: PRODUCT USED FOR UNKNOWN INDICATION
     Dosage: UNK
     Route: 065
  11. OXALIPLATIN. [Suspect]
     Active Substance: OXALIPLATIN
     Dosage: UNK
     Route: 042
     Dates: start: 20140506
  12. IRINOTECAN [Suspect]
     Active Substance: IRINOTECAN
     Dosage: UNK
     Route: 042
     Dates: start: 20140506
  13. 5-FLUOROURACIL [Suspect]
     Active Substance: FLUOROURACIL
     Dosage: 1 DF, IN 2 WEEKS
     Route: 040
     Dates: start: 20140506
  14. CIPROFLOXACIN. [Concomitant]
     Active Substance: CIPROFLOXACIN
     Indication: PRODUCT USED FOR UNKNOWN INDICATION
     Dosage: 500 MG, UNK
     Route: 065
     Dates: start: 20140603, end: 20140613
  15. LEVOLEUCOVORIN [Suspect]
     Active Substance: LEVOLEUCOVORIN
     Indication: COLORECTAL CANCER METASTATIC
     Dosage: 210 MG,  1 IN 2 WK
     Route: 042
     Dates: start: 20140402, end: 20140422

REACTIONS (11)
  - Chest pain [Unknown]
  - Febrile neutropenia [Recovered/Resolved]
  - Escherichia infection [Unknown]
  - Fluid overload [Unknown]
  - Hypotension [Unknown]
  - Diarrhoea [Recovered/Resolved]
  - Atrial fibrillation [Unknown]
  - Dehydration [Recovered/Resolved]
  - Bradycardia [Unknown]
  - Pyrexia [Recovered/Resolved]
  - Neutropenia [Recovered/Resolved]

NARRATIVE: CASE EVENT DATE: 20140408
